FAERS Safety Report 12454737 (Version 2)
Quarter: 2016Q2

REPORT INFORMATION
  Report Type: Spontaneous
  Country: JP (occurrence: JP)
  Receive Date: 20160610
  Receipt Date: 20160621
  Transmission Date: 20160815
  Serious: Yes (Other)
  Sender: FDA-Public Use
  Company Number: JP-BAYER-2016-113251

PATIENT
  Age: 75 Year
  Sex: Female

DRUGS (1)
  1. BAYASPIRIN [Suspect]
     Active Substance: ASPIRIN
     Indication: ANGINA UNSTABLE
     Route: 048

REACTIONS (3)
  - Haemorrhagic anaemia [None]
  - Haemobilia [Recovered/Resolved]
  - Cholecystitis [None]
